FAERS Safety Report 6150952-7 (Version None)
Quarter: 2009Q2

REPORT INFORMATION
  Report Type: 
  Country: None (occurrence: None)
  Receive Date: 20090410
  Receipt Date: 20071121
  Transmission Date: 20091009
  Serious: Yes (Death, Hospitalization, Other)
  Sender: FDA-Public Use
  Company Number: US-ASTRAZENECA-2006UW21572

PATIENT
  Age: 23599 Day
  Sex: Male

DRUGS (13)
  1. SEROQUEL [Suspect]
     Indication: DEMENTIA ALZHEIMER'S TYPE
     Dosage: 25 MG-100 MG
     Route: 048
     Dates: start: 20020521
  2. SEROQUEL [Suspect]
     Indication: AGITATION
     Dosage: 25 MG-100 MG
     Route: 048
     Dates: start: 20020521
  3. SEROQUEL [Suspect]
     Indication: CONFUSIONAL STATE
     Dosage: 25 MG-100 MG
     Route: 048
     Dates: start: 20020521
  4. ARICEPT [Concomitant]
  5. MONOPRIL [Concomitant]
  6. HYDROCHLOROTHIAZIDE [Concomitant]
  7. FLOMAX [Concomitant]
  8. FEVERALL [Concomitant]
  9. LORAZEPAM [Concomitant]
  10. NOVOLIN R [Concomitant]
  11. HALDOL [Concomitant]
  12. ZINC SULPHATE [Concomitant]
  13. ANNUSOL [Concomitant]

REACTIONS (14)
  - ANAEMIA [None]
  - ASTHENIA [None]
  - BENIGN PROSTATIC HYPERPLASIA [None]
  - CARDIAC MURMUR [None]
  - CEREBROVASCULAR ACCIDENT [None]
  - CORONARY ARTERY DISEASE [None]
  - DEMENTIA ALZHEIMER'S TYPE [None]
  - DIABETES MELLITUS [None]
  - DIABETIC NEPHROPATHY [None]
  - OEDEMA [None]
  - PSYCHOTIC DISORDER [None]
  - RENAL FAILURE CHRONIC [None]
  - URINARY INCONTINENCE [None]
  - URINARY TRACT INFECTION [None]
